FAERS Safety Report 12075229 (Version 2)
Quarter: 2016Q1

REPORT INFORMATION
  Report Type: Spontaneous
  Country: US (occurrence: US)
  Receive Date: 20160212
  Receipt Date: 20160303
  Transmission Date: 20160526
  Serious: Yes (Other)
  Sender: FDA-Public Use
  Company Number: US-ALLERGAN-1612010US

PATIENT
  Age: 73 Year
  Sex: Female

DRUGS (2)
  1. LIBRIUM [Concomitant]
     Active Substance: CHLORDIAZEPOXIDE HYDROCHLORIDE
     Indication: DIZZINESS
     Dosage: 10 MG, TID
     Route: 048
  2. RESTASIS [Suspect]
     Active Substance: CYCLOSPORINE
     Indication: DRY EYE
     Dosage: 2 GTT, TID
     Route: 047

REACTIONS (5)
  - Arthralgia [Not Recovered/Not Resolved]
  - Breast disorder [Not Recovered/Not Resolved]
  - Patella fracture [Not Recovered/Not Resolved]
  - Fall [Unknown]
  - Inappropriate schedule of drug administration [Unknown]

NARRATIVE: CASE EVENT DATE: 201601
